FAERS Safety Report 23492340 (Version 2)
Quarter: 2024Q1

REPORT INFORMATION
  Report Type: Report from Study
  Country: FR (occurrence: FR)
  Receive Date: 20240207
  Receipt Date: 20240215
  Transmission Date: 20240410
  Serious: Yes (Death, Other)
  Sender: FDA-Public Use
  Company Number: FR-CELLTRION INC.-2024FR002584

PATIENT

DRUGS (3)
  1. BEVACIZUMAB [Suspect]
     Active Substance: BEVACIZUMAB
     Indication: Mixed hepatocellular cholangiocarcinoma
     Dosage: 15 MILLIGRAM/KILOGRAM, Q3WK
     Route: 042
     Dates: start: 202007, end: 202203
  2. BEVACIZUMAB [Suspect]
     Active Substance: BEVACIZUMAB
     Indication: Mixed hepatocellular cholangiocarcinoma
     Dosage: 15 MILLIGRAM/KILOGRAM, Q3WK
     Route: 042
  3. ATEZOLIZUMAB [Concomitant]
     Active Substance: ATEZOLIZUMAB
     Indication: Mixed hepatocellular cholangiocarcinoma
     Dosage: 1200 MILLIGRAM, Q3WK
     Route: 042

REACTIONS (3)
  - Death [Fatal]
  - Mixed hepatocellular cholangiocarcinoma [Unknown]
  - Off label use [Unknown]
